FAERS Safety Report 21153205 (Version 1)
Quarter: 2022Q3

REPORT INFORMATION
  Report Type: Spontaneous
  Country: US (occurrence: None)
  Receive Date: 20220731
  Receipt Date: 20220731
  Transmission Date: 20221027
  Serious: No
  Sender: FDA-Public Use
  Company Number: 2022A255738

PATIENT
  Age: 72 Year
  Sex: Male
  Weight: 68 kg

DRUGS (20)
  1. DAPAGLIFLOZIN [Suspect]
     Active Substance: DAPAGLIFLOZIN
     Indication: Ill-defined disorder
     Route: 048
     Dates: start: 20220711
  2. AMOXICILLIN [Concomitant]
     Active Substance: AMOXICILLIN
     Indication: Ill-defined disorder
     Dosage: TAKE ONE CAPSULE THREE TIMES A DAY FOR INFECTIO...
  3. ASPIRIN [Concomitant]
     Active Substance: ASPIRIN
     Indication: Ill-defined disorder
     Dosage: TAKE ONE TABLET DAILY
  4. BISOPROLOL [Concomitant]
     Active Substance: BISOPROLOL
     Indication: Ill-defined disorder
     Dosage: TAKE ONE DAILY
  5. BUMETANIDE [Concomitant]
     Active Substance: BUMETANIDE
     Indication: Ill-defined disorder
     Dosage: TAKE ONE TWICE DAILY
  6. CARBOCYSTEINE [Concomitant]
     Active Substance: CARBOCYSTEINE
     Indication: Ill-defined disorder
     Dosage: TAKE ONE CAPSULE THREE TIMES DAILY
     Dates: start: 20220607, end: 20220607
  7. CLOPIDOGREL [Concomitant]
     Active Substance: CLOPIDOGREL BISULFATE
     Indication: Ill-defined disorder
     Dosage: TAKE ONE ONCE DAILY
  8. CHOLECALCIFEROL [Concomitant]
     Active Substance: CHOLECALCIFEROL
     Indication: Ill-defined disorder
     Dosage: TAKE ONE CAPSULE ONCE EVERY WEEK FOR 7 WEEKS (R...
     Dates: start: 20220708
  9. DAPAGLIFLOZIN [Concomitant]
     Active Substance: DAPAGLIFLOZIN
     Indication: Ill-defined disorder
     Dosage: TAKE ONE TABLET DAILY IN THE MORNING
     Dates: start: 20220419, end: 20220505
  10. FUROSEMIDE [Concomitant]
     Active Substance: FUROSEMIDE
     Indication: Ill-defined disorder
     Dosage: TAKE ONE TABLET DAILY FOR 3 DAYS AS DIRECTED BY...
     Dates: start: 20220419, end: 20220630
  11. NITROGLYCERIN [Concomitant]
     Active Substance: NITROGLYCERIN
     Indication: Ill-defined disorder
     Dosage: TAKE ONE AS DIRECTED
  12. IVABRADINE [Concomitant]
     Active Substance: IVABRADINE
     Indication: Ill-defined disorder
     Dosage: TAKE ONE TWICE DAILY
     Dates: start: 20220607, end: 20220705
  13. LACTULOSE [Concomitant]
     Active Substance: LACTULOSE
     Indication: Ill-defined disorder
     Dosage: 2X5ML SPOONS TWICE DAILY
  14. LANSOPRAZOLE [Concomitant]
     Active Substance: LANSOPRAZOLE
     Indication: Ill-defined disorder
     Dosage: TAKE ONE CAPSULE DAILY FOR STOMACH
  15. RAMIPRIL [Concomitant]
     Active Substance: RAMIPRIL
     Indication: Ill-defined disorder
     Dosage: TAKE ONE CAPSULE DAILY FOR BLOOD PRESSURE
     Dates: start: 20220711
  16. ROSUVASTATIN [Concomitant]
     Active Substance: ROSUVASTATIN
     Indication: Ill-defined disorder
     Dosage: TAKE ONE DAILY
  17. SACUBITRIL [Concomitant]
     Active Substance: SACUBITRIL
     Indication: Ill-defined disorder
     Dosage: TAKE HALF A TABLET DAILY AS ADVISED BY CARDIOLO...
     Dates: start: 20220419
  18. CROMOLYN SODIUM [Concomitant]
     Active Substance: CROMOLYN SODIUM
     Indication: Ill-defined disorder
     Dosage: AS DIRECTED
  19. SPIRONOLACTONE [Concomitant]
     Active Substance: SPIRONOLACTONE
     Indication: Ill-defined disorder
     Dosage: TAKE ONE TABLET DAILY IN THE MORNING
  20. TICAGRELOR [Concomitant]
     Active Substance: TICAGRELOR
     Indication: Ill-defined disorder
     Dosage: TAKE ONE TABLET TWICE A DAY FOR 1 YEAR UP TO AN...

REACTIONS (1)
  - Malaise [Recovered/Resolved]

NARRATIVE: CASE EVENT DATE: 20220711
